FAERS Safety Report 8445963-2 (Version None)
Quarter: 2012Q2

REPORT INFORMATION
  Report Type: 
  Country: None (occurrence: None)
  Receive Date: 20120618
  Receipt Date: 20120612
  Transmission Date: 20120825
  Serious: Yes (Other)
  Sender: FDA-Public Use
  Company Number: US-ASTRAZENECA-2012SE39653

PATIENT
  Age: 52 Year
  Sex: Male

DRUGS (4)
  1. PROVENTIL [Concomitant]
  2. SYMBICORT [Suspect]
     Route: 055
  3. CPAP [Concomitant]
  4. OXYGEN [Concomitant]

REACTIONS (3)
  - CEREBROVASCULAR ACCIDENT [None]
  - ATRIAL FIBRILLATION [None]
  - MYOCARDIAL INFARCTION [None]
